FAERS Safety Report 7591616-2 (Version None)
Quarter: 2011Q3

REPORT INFORMATION
  Report Type: 
  Country: None (occurrence: None)
  Receive Date: 20110706
  Receipt Date: 20110624
  Transmission Date: 20111222
  Serious: Yes (Hospitalization, Other)
  Sender: FDA-Public Use
  Company Number: US-BAYER-201034923NA

PATIENT
  Age: 51 Year
  Sex: Female
  Weight: 56.236 kg

DRUGS (18)
  1. DROSPIRENONE AND ETHINYL ESTRADIOL [Suspect]
     Indication: CONTRACEPTION
     Dosage: UNK
     Dates: start: 20090112, end: 20090201
  2. MULTI-VITAMINS [Concomitant]
     Indication: MEDICAL DIET
     Dosage: UNK UNK, QD
  3. BIOTIN [Concomitant]
     Indication: MEDICAL DIET
     Dosage: 300 MG, QD
  4. ZOLOFT [Concomitant]
     Indication: ANXIETY
     Dosage: 100 MG, QD
     Dates: start: 20081101
  5. LYRICA [Concomitant]
     Dosage: 50 MG, QD
  6. DOXYCYCLINE [Concomitant]
     Indication: RESPIRATORY DISORDER
     Dosage: 100 MG, UNK
  7. SYNTHROID [Concomitant]
     Indication: THYROID DISORDER
     Dosage: 125 ?G, QD
     Dates: start: 19910101
  8. MEDROL [Concomitant]
     Dosage: 21 DF, UNK
     Dates: start: 20090122
  9. TIZANIDINE HCL [Concomitant]
     Indication: MYALGIA
     Dosage: 4 MG, PRN
  10. PROMETHAZINE - CODEINE [CODEINE PHOSPHATE,PROMETHAZINE HYDROCHLORIDE] [Concomitant]
     Indication: RESPIRATORY DISORDER
     Dosage: UNK
     Dates: start: 20090122
  11. YAZ [Suspect]
     Indication: MIGRAINE
  12. LEVAQUIN [Concomitant]
     Indication: ANTIBIOTIC THERAPY
     Dosage: 500 MG, UNK
     Dates: start: 20090126
  13. PREDNISONE [Concomitant]
     Dosage: 20 DF, UNK
     Dates: start: 20090206
  14. ZANTAC [Concomitant]
     Indication: GASTRIC DISORDER
     Dosage: 300 MG, QD
     Dates: start: 20081029
  15. YAZ [Suspect]
     Indication: CONTRACEPTION
     Route: 048
     Dates: start: 20010701, end: 20090201
  16. YASMIN [Suspect]
     Indication: CONTRACEPTION
     Route: 048
     Dates: start: 20010701, end: 20090201
  17. CELEBREX [Concomitant]
     Indication: MYALGIA
     Dosage: 200 MG, PRN
  18. CALCIUM CARBONATE [Concomitant]
     Indication: MEDICAL DIET
     Dosage: UNK UNK, QD

REACTIONS (5)
  - PAIN [None]
  - ANXIETY [None]
  - DEEP VEIN THROMBOSIS [None]
  - MENTAL DISORDER [None]
  - PULMONARY EMBOLISM [None]
